FAERS Safety Report 13877342 (Version 2)
Quarter: 2017Q3

REPORT INFORMATION
  Report Type: Spontaneous
  Country: US (occurrence: US)
  Receive Date: 20170817
  Receipt Date: 20170922
  Transmission Date: 20171127
  Serious: Yes (Hospitalization, Other)
  Sender: FDA-Public Use
  Company Number: US-BAYER-2017-155931

PATIENT
  Age: 30 Year
  Sex: Female

DRUGS (1)
  1. MIRENA [Suspect]
     Active Substance: LEVONORGESTREL
     Indication: CONTRACEPTION
     Dosage: 20 MCG/24HR, CONT
     Route: 015
     Dates: start: 20120508, end: 20160401

REACTIONS (7)
  - Weight decreased [None]
  - Depression [None]
  - Menorrhagia [None]
  - Alopecia [None]
  - Migraine [None]
  - Pain [None]
  - Uterine perforation [None]

NARRATIVE: CASE EVENT DATE: 201603
